FAERS Safety Report 7829103-6 (Version None)
Quarter: 2011Q4

REPORT INFORMATION
  Report Type: 
  Country: None (occurrence: None)
  Receive Date: 20111020
  Receipt Date: 20111012
  Transmission Date: 20120403
  Serious: Yes (Hospitalization)
  Sender: FDA-Public Use
  Company Number: US-ELI_LILLY_AND_COMPANY-US201110002980

PATIENT
  Sex: Female
  Weight: 80.24 kg

DRUGS (9)
  1. PREDNISONE [Concomitant]
     Dosage: 20 MG, QD
     Route: 048
  2. FENOFIBRATE [Concomitant]
     Dosage: 134 MG, QD
     Route: 048
  3. HYDROCHLOROTHIAZIDE [Concomitant]
     Dosage: 25 MG, QD
     Route: 048
  4. ATORVASTATIN [Concomitant]
     Dosage: 80 MG, QD
     Route: 048
  5. ASPIRIN [Concomitant]
     Dosage: 81 MG, QD
     Route: 048
  6. OMEPRAZOLE [Concomitant]
     Dosage: 40 MG, BID
     Route: 048
  7. EFFIENT [Suspect]
     Dosage: 10 MG, QD
     Route: 048
     Dates: start: 20110407, end: 20110415
  8. METOPROLOL TARTRATE [Concomitant]
     Dosage: 75 MG, EVERY 12 HOURS
  9. EFFIENT [Suspect]
     Indication: STENT PLACEMENT
     Dosage: 60 MG, LOADING DOSE
     Dates: start: 20110406

REACTIONS (4)
  - DYSPNOEA [None]
  - ABDOMINAL PAIN [None]
  - HYPERHIDROSIS [None]
  - PLATELET COUNT DECREASED [None]
